FAERS Safety Report 14563115 (Version 1)
Quarter: 2018Q1

REPORT INFORMATION
  Report Type: Spontaneous
  Country: AR (occurrence: AR)
  Receive Date: 20180222
  Receipt Date: 20180222
  Transmission Date: 20180509
  Serious: Yes (Other)
  Sender: FDA-Public Use
  Company Number: AR-LANNETT COMPANY, INC.-AR-2018LAN000477

PATIENT
  Age: 49 Year
  Sex: Female

DRUGS (2)
  1. ACETAZOLAMIDE. [Suspect]
     Active Substance: ACETAZOLAMIDE
     Indication: VISUAL FIELD DEFECT
     Dosage: 500 MG, (TWO TABLETS OF 250 MG EACH)
     Route: 065
  2. ACETAZOLAMIDE. [Suspect]
     Active Substance: ACETAZOLAMIDE
     Indication: HYPOBARISM
     Dosage: 1 G, (FOUR TABLETS OF 250 MG EACH)
     Route: 065

REACTIONS (3)
  - Angle closure glaucoma [Recovered/Resolved]
  - Myopia [Recovered/Resolved]
  - Gastrointestinal tract irritation [Recovered/Resolved]
